FAERS Safety Report 9736328 (Version 1)
Quarter: 2013Q4

REPORT INFORMATION
  Report Type: Spontaneous
  Country: GB (occurrence: GB)
  Receive Date: 20131206
  Receipt Date: 20131206
  Transmission Date: 20140711
  Serious: Yes (Other)
  Sender: FDA-Public Use
  Company Number: GB-WATSON-2013-22342

PATIENT
  Age: 74 Year
  Sex: Male

DRUGS (3)
  1. TRIMETHOPRIM (UNKNOWN) [Suspect]
     Indication: URINARY TRACT INFECTION
     Dosage: 200 MG, BID
     Route: 065
     Dates: start: 20070301, end: 20070303
  2. MAXTREX [Interacting]
     Indication: RHEUMATOID ARTHRITIS
     Dosage: 10 MG, UNK
     Route: 048
     Dates: start: 20070224
  3. MAXTREX [Interacting]
     Dosage: 12.5 MG, UNK
     Route: 048
     Dates: start: 20070303

REACTIONS (3)
  - Drug level increased [Recovered/Resolved]
  - Medication error [Recovered/Resolved]
  - Drug interaction [Recovered/Resolved]
